FAERS Safety Report 6831244-7 (Version None)
Quarter: 2010Q2

REPORT INFORMATION
  Report Type: 
  Country: None (occurrence: None)
  Receive Date: 20100520
  Receipt Date: 20090331
  Transmission Date: 20101027
  Serious: Yes (Other)
  Sender: FDA-Public Use
  Company Number: 2009193313

PATIENT
  Age: 52 Year
  Sex: Female
  Weight: 88 kg

DRUGS (13)
  1. PROVERA [Suspect]
     Indication: HORMONE REPLACEMENT THERAPY
     Dosage: 5 MG, ORAL
     Route: 048
     Dates: start: 19930706, end: 19980514
  2. MEDROXYPROGESTERONE ACETATE [Suspect]
     Indication: HORMONE REPLACEMENT THERAPY
     Dosage: 5 MG
     Dates: start: 19980514, end: 19990330
  3. PREMARIN [Suspect]
     Indication: HORMONE REPLACEMENT THERAPY
     Dosage: 0.625, 1X/DAY
     Dates: start: 19960729, end: 19990330
  4. ORTHO TRI-CYCLEN [Suspect]
     Indication: HORMONE REPLACEMENT THERAPY
     Dates: start: 19940314, end: 19940810
  5. PREMPRO [Suspect]
     Indication: HORMONE REPLACEMENT THERAPY
     Dates: start: 19960416, end: 19960729
  6. VIVELLE [Suspect]
     Indication: HORMONE REPLACEMENT THERAPY
     Dosage: TRANSDERMAL
     Route: 062
     Dates: start: 19990330
  7. TESTOSTERONE [Suspect]
     Indication: HORMONE REPLACEMENT THERAPY
     Dosage: TWICE A WEEK
     Dates: start: 19990330
  8. PROMETRIUM [Suspect]
     Indication: HORMONE REPLACEMENT THERAPY
     Dosage: 200 MG
     Dates: start: 19990330, end: 19990601
  9. ESTRADIOL [Suspect]
     Indication: HORMONE REPLACEMENT THERAPY
     Dosage: 2 MG
     Dates: start: 19990427
  10. CRINONE [Suspect]
     Indication: HORMONE REPLACEMENT THERAPY
     Dosage: 8%
     Dates: start: 20000323
  11. VAGIFEM [Suspect]
     Indication: HORMONE REPLACEMENT THERAPY
     Dosage: 25 UG
     Dates: start: 20001023
  12. COMBIPATCH [Suspect]
     Dates: start: 19990330
  13. ACETYLSALICYLIC ACID (ACETYSALICYLIC ACID) [Concomitant]

REACTIONS (1)
  - BREAST CANCER FEMALE [None]
